FAERS Safety Report 23847838 (Version 2)
Quarter: 2024Q2

REPORT INFORMATION
  Report Type: Spontaneous
  Country: JP (occurrence: JP)
  Receive Date: 20240513
  Receipt Date: 20240624
  Transmission Date: 20240715
  Serious: Yes (Other)
  Sender: FDA-Public Use
  Company Number: JP-TAKEDA-2024TJP006642

PATIENT

DRUGS (1)
  1. ZEJULA [Suspect]
     Active Substance: NIRAPARIB
     Indication: Ovarian cancer
     Dosage: 200 MILLIGRAM, QD
     Route: 048
     Dates: start: 202305, end: 202404

REACTIONS (1)
  - Ovarian cancer [Recovered/Resolved]

NARRATIVE: CASE EVENT DATE: 20240401
